FAERS Safety Report 9538771 (Version 1)
Quarter: 2013Q3

REPORT INFORMATION
  Report Type: Report from Study
  Country: US (occurrence: US)
  Receive Date: 20130920
  Receipt Date: 20130920
  Transmission Date: 20140515
  Serious: Yes (Other)
  Sender: FDA-Public Use
  Company Number: PHEH2013US019734

PATIENT
  Sex: Male

DRUGS (13)
  1. TASIGNA [Suspect]
     Indication: CHRONIC MYELOID LEUKAEMIA
     Dosage: UNK
     Route: 048
     Dates: start: 200904
  2. KAPIDEX [Concomitant]
  3. COUMADINE [Concomitant]
  4. AZITHROMYCIN [Concomitant]
  5. BACTRIM DS [Concomitant]
  6. ALPHA LIPOIC ACID [Concomitant]
  7. MAGNESIUM OXIDE [Concomitant]
  8. CALCIUM [Concomitant]
  9. VITAMIN B2 [Concomitant]
  10. VITAMIN B12 [Concomitant]
  11. FOLATE [Concomitant]
  12. PROGRAF [Concomitant]
  13. IMMUNOGLOBULIN I.V [Concomitant]

REACTIONS (2)
  - Skin cancer [Unknown]
  - Second primary malignancy [Unknown]
